FAERS Safety Report 16584844 (Version 1)
Quarter: 2019Q3

REPORT INFORMATION
  Report Type: Spontaneous
  Country: US (occurrence: US)
  Receive Date: 20190717
  Receipt Date: 20190717
  Transmission Date: 20191004
  Serious: Yes (Hospitalization)
  Sender: FDA-Public Use
  Company Number: PHHY2019US159732

PATIENT
  Age: 31 Year
  Sex: Male
  Weight: 103 kg

DRUGS (7)
  1. HYDROMORPHONE [Concomitant]
     Active Substance: HYDROMORPHONE
     Indication: PAIN
     Dosage: UNK
     Route: 042
  2. CARBOPLATIN. [Suspect]
     Active Substance: CARBOPLATIN
     Indication: SQUAMOUS CELL CARCINOMA
     Dosage: UNK
     Route: 065
  3. PREDNISONE. [Concomitant]
     Active Substance: PREDNISONE
     Indication: PYODERMA GANGRENOSUM
     Dosage: 0.6 MG/KG, QD
     Route: 065
  4. METHADONE [Concomitant]
     Active Substance: METHADONE HYDROCHLORIDE
     Indication: PAIN
     Dosage: UNK
     Route: 065
  5. GABAPENTIN. [Concomitant]
     Active Substance: GABAPENTIN
     Indication: PAIN
     Dosage: UNK
     Route: 065
  6. ACETAMINOPHEN. [Concomitant]
     Active Substance: ACETAMINOPHEN
     Indication: PAIN
     Dosage: UNK
     Route: 065
  7. PACLITAXEL. [Suspect]
     Active Substance: PACLITAXEL
     Indication: SQUAMOUS CELL CARCINOMA
     Dosage: UNK
     Route: 065

REACTIONS (5)
  - Drug ineffective [Unknown]
  - Hypotension [Unknown]
  - Sepsis [Unknown]
  - Pyrexia [Unknown]
  - Leukocytosis [Unknown]
